FAERS Safety Report 4286095-7 (Version None)
Quarter: 2004Q1

REPORT INFORMATION
  Report Type: 
  Country: None (occurrence: None)
  Receive Date: 20040203
  Receipt Date: 20040122
  Transmission Date: 20041129
  Serious: Yes (Hospitalization, Other)
  Sender: FDA-Public Use
  Company Number: HQWYE528222JAN04

PATIENT
  Age: 10 Month
  Sex: Female

DRUGS (2)
  1. IBUPROFEN [Suspect]
     Indication: PYREXIA
     Dosage: 67 MG X 4/D; ORAL
     Route: 048
     Dates: start: 50010525, end: 20010601
  2. ACETAMINOPHEN [Suspect]
     Indication: PYREXIA
     Dosage: 135 MG X 4/D; ORAL
     Route: 048
     Dates: start: 20010525

REACTIONS (2)
  - EAR INFECTION [None]
  - SKIN INFECTION [None]
